FAERS Safety Report 11330712 (Version 1)
Quarter: 2015Q3

REPORT INFORMATION
  Report Type: Spontaneous
  Country: US (occurrence: None)
  Receive Date: 20150731
  Receipt Date: 20150731
  Transmission Date: 20151125
  Serious: No
  Sender: FDA-Public Use
  Company Number: None

PATIENT
  Age: 73 Year
  Sex: Male

DRUGS (16)
  1. MULTIVITAMIN [Concomitant]
     Active Substance: VITAMINS
  2. SENNA [Concomitant]
     Active Substance: SENNA LEAF\SENNOSIDES\SENNOSIDES A AND B
  3. TEMAZEPAM. [Concomitant]
     Active Substance: TEMAZEPAM
  4. DIGOXIN. [Concomitant]
     Active Substance: DIGOXIN
  5. LISINOPRIL. [Concomitant]
     Active Substance: LISINOPRIL
  6. POTASSIUM CHLORIDE. [Concomitant]
     Active Substance: POTASSIUM CHLORIDE
  7. CEFTRIAXONE. [Concomitant]
     Active Substance: CEFTRIAXONE
  8. GABAPENTIN. [Concomitant]
     Active Substance: GABAPENTIN
  9. INSULIN [Concomitant]
     Active Substance: INSULIN NOS
  10. ALLOPURINOL. [Concomitant]
     Active Substance: ALLOPURINOL
  11. AMPICILLIN [Concomitant]
     Active Substance: AMPICILLIN
  12. FUROSEMIDE. [Concomitant]
     Active Substance: FUROSEMIDE
  13. CARVEDILOL. [Concomitant]
     Active Substance: CARVEDILOL
  14. WARFARIN [Suspect]
     Active Substance: WARFARIN
     Indication: ATRIAL FIBRILLATION
     Route: 048
  15. DOCUSATE [Concomitant]
     Active Substance: DOCUSATE
  16. METOLAZONE. [Concomitant]
     Active Substance: METOLAZONE

REACTIONS (1)
  - International normalised ratio increased [None]

NARRATIVE: CASE EVENT DATE: 20141115
